FAERS Safety Report 6611903-1 (Version None)
Quarter: 2010Q1

REPORT INFORMATION
  Report Type: 
  Country: None (occurrence: None)
  Receive Date: 20100226
  Receipt Date: 20100226
  Transmission Date: 20100710
  Serious: No
  Sender: FDA-Public Use
  Company Number: None

PATIENT
  Age: 47 Year
  Sex: Female
  Weight: 86.1834 kg

DRUGS (1)
  1. LIALDA [Suspect]
     Indication: COLITIS MICROSCOPIC
     Dosage: 1 TBLET DAILY
     Dates: start: 20091001, end: 20100201

REACTIONS (17)
  - ALOPECIA [None]
  - DYSPEPSIA [None]
  - DYSPHONIA [None]
  - FATIGUE [None]
  - FEELING COLD [None]
  - FEELING OF BODY TEMPERATURE CHANGE [None]
  - JAW DISORDER [None]
  - JOINT SWELLING [None]
  - LETHARGY [None]
  - RASH [None]
  - RHINORRHOEA [None]
  - SENSITIVITY OF TEETH [None]
  - SWELLING [None]
  - TEMPERATURE INTOLERANCE [None]
  - TOOTHACHE [None]
  - URTICARIA [None]
  - WEIGHT INCREASED [None]
